FAERS Safety Report 23607887 (Version 1)
Quarter: 2024Q1

REPORT INFORMATION
  Report Type: Report from Study
  Country: PR (occurrence: PR)
  Receive Date: 20240307
  Receipt Date: 20240307
  Transmission Date: 20240410
  Serious: Yes (Hospitalization)
  Sender: FDA-Public Use
  Company Number: PR-Eisai-EC-2024-158774

PATIENT
  Age: 44 Year
  Sex: Female
  Weight: 90.72 kg

DRUGS (7)
  1. LENVIMA [Suspect]
     Active Substance: LENVATINIB
     Indication: Endometrial cancer
     Route: 048
     Dates: start: 20240120, end: 202402
  2. SYNTHROID [Concomitant]
     Active Substance: LEVOTHYROXINE SODIUM
     Dosage: DOSE AND FREQUENCY UNKNOWN
  3. LISINOPRIL [Concomitant]
     Active Substance: LISINOPRIL
     Dosage: DOSE AND FREQUENCY UNKNOWN
  4. HUMULIN NOS [Concomitant]
     Active Substance: INSULIN HUMAN
     Dosage: DOSE AND FREQUENCY UNKNOWN
  5. METFORMIN [Concomitant]
     Active Substance: METFORMIN HYDROCHLORIDE
     Dosage: DOSE AND FREQUENCY UNKNOWN
  6. GLUCOTROL [Concomitant]
     Active Substance: GLIPIZIDE
     Dosage: DOSE AND FREQUENCY UNKNOWN
  7. TRAMADOL [Concomitant]
     Active Substance: TRAMADOL\TRAMADOL HYDROCHLORIDE
     Dosage: DOSE AND FREQUENCY UNKNOWN

REACTIONS (6)
  - Vaginal fistula [Unknown]
  - Blood pressure increased [Unknown]
  - Tremor [Unknown]
  - Dry mouth [Not Recovered/Not Resolved]
  - Vaginal discharge [Not Recovered/Not Resolved]
  - Anxiety [Not Recovered/Not Resolved]

NARRATIVE: CASE EVENT DATE: 20240101
